FAERS Safety Report 25471053 (Version 1)
Quarter: 2025Q2

REPORT INFORMATION
  Report Type: Spontaneous
  Country: US (occurrence: US)
  Receive Date: 20250624
  Receipt Date: 20250624
  Transmission Date: 20250717
  Serious: Yes (Other)
  Sender: OXFORD PHARMACEUTICALS, LLC
  Company Number: US-Oxford Pharmaceuticals, LLC-2179245

PATIENT
  Age: 32 Year
  Sex: Female

DRUGS (1)
  1. SERTRALINE HYDROCHLORIDE [Suspect]
     Active Substance: SERTRALINE HYDROCHLORIDE
     Indication: Anxiety

REACTIONS (1)
  - Activation syndrome [Recovered/Resolved]
